FAERS Safety Report 9735109 (Version 1)
Quarter: 2013Q4

REPORT INFORMATION
  Report Type: Spontaneous
  Country: AU (occurrence: None)
  Receive Date: 20131204
  Receipt Date: 20131204
  Transmission Date: 20140711
  Serious: Yes (Hospitalization)
  Sender: FDA-Public Use
  Company Number: FK201305167

PATIENT
  Age: 57 Year
  Sex: Male

DRUGS (3)
  1. FLUOROURACIL (MANUFACTURER UNKNOWN) (FLUOROURACIL) (FLUOROURACIL) [Suspect]
     Indication: COLORECTAL CANCER STAGE III
     Dosage: 780 MG, ON DAY 1
  2. OXALIPLATIN (OXALIPLATIN) [Concomitant]
  3. LEUCOVORIN [Concomitant]

REACTIONS (3)
  - Optic disc disorder [None]
  - Oedema [None]
  - Optic neuropathy [None]
